FAERS Safety Report 7553960-4 (Version None)
Quarter: 2011Q2

REPORT INFORMATION
  Report Type: 
  Country: None (occurrence: None)
  Receive Date: 20110617
  Receipt Date: 20100507
  Transmission Date: 20111010
  Serious: No
  Sender: FDA-Public Use
  Company Number: US-BRISTOL-MYERS SQUIBB COMPANY-15081532

PATIENT
  Age: 29 Year
  Sex: Female

DRUGS (1)
  1. MUTAMYCIN [Suspect]

REACTIONS (3)
  - ACCIDENTAL EXPOSURE [None]
  - NO ADVERSE EVENT [None]
  - PREGNANCY [None]
